FAERS Safety Report 7392732-0 (Version None)
Quarter: 2011Q1

REPORT INFORMATION
  Report Type: 
  Country: None (occurrence: None)
  Receive Date: 20110330
  Receipt Date: 20110330
  Transmission Date: 20110831
  Serious: Yes (Hospitalization)
  Sender: FDA-Public Use
  Company Number: None

PATIENT
  Sex: Male
  Weight: 77.11 kg

DRUGS (1)
  1. PRADAXA [Suspect]
     Indication: ATRIAL FIBRILLATION
     Dosage: 150 MG TWICE DAILY PO
     Route: 048
     Dates: start: 20110207, end: 20110326

REACTIONS (5)
  - DYSPEPSIA [None]
  - OCCULT BLOOD POSITIVE [None]
  - DIZZINESS [None]
  - DYSPNOEA [None]
  - CHEST DISCOMFORT [None]
